FAERS Safety Report 9205820 (Version 1)
Quarter: 2013Q2

REPORT INFORMATION
  Report Type: Spontaneous
  Country: CA (occurrence: CA)
  Receive Date: 20130403
  Receipt Date: 20130403
  Transmission Date: 20140414
  Serious: Yes (Death)
  Sender: FDA-Public Use
  Company Number: CA-AMGEN-CANSP2013022180

PATIENT
  Age: 40 Year
  Sex: Male

DRUGS (1)
  1. XGEVA [Suspect]
     Indication: COLON CANCER
     Dosage: UNK
     Dates: start: 20120619

REACTIONS (1)
  - Death [Fatal]
